FAERS Safety Report 15547526 (Version 1)
Quarter: 2018Q4

REPORT INFORMATION
  Report Type: Spontaneous
  Country: CA (occurrence: CA)
  Receive Date: 20181024
  Receipt Date: 20181024
  Transmission Date: 20190205
  Serious: Yes (Hospitalization)
  Sender: FDA-Public Use
  Company Number: CA-EMD SERONO-9048190

PATIENT
  Age: 77 Year
  Sex: Female
  Weight: 54 kg

DRUGS (1)
  1. BAVENCIO [Suspect]
     Active Substance: AVELUMAB
     Indication: BLADDER CANCER
     Dosage: 10 MG/KG
     Route: 042

REACTIONS (2)
  - Cystitis [Recovering/Resolving]
  - Device related infection [Recovering/Resolving]
